FAERS Safety Report 12932754 (Version 1)
Quarter: 2016Q4

REPORT INFORMATION
  Report Type: Spontaneous
  Country: US (occurrence: US)
  Receive Date: 20161111
  Receipt Date: 20161111
  Transmission Date: 20170207
  Serious: No
  Sender: FDA-Public Use
  Company Number: US-PFIZER INC-2016521587

PATIENT
  Age: 68 Year
  Sex: Male

DRUGS (5)
  1. REMERON [Suspect]
     Active Substance: MIRTAZAPINE
     Dosage: UNK
  2. SERTRALINE HCL [Suspect]
     Active Substance: SERTRALINE HYDROCHLORIDE
     Dosage: UNK
  3. VIAGRA [Suspect]
     Active Substance: SILDENAFIL CITRATE
     Dosage: UNK
  4. PHOSPHATE ENEMA [Suspect]
     Active Substance: SODIUM PHOSPHATE, DIBASIC\SODIUM PHOSPHATE, MONOBASIC
     Dosage: UNK
  5. MILK OF MAGNESIA [Suspect]
     Active Substance: MAGNESIUM HYDROXIDE
     Dosage: UNK

REACTIONS (1)
  - Drug hypersensitivity [Unknown]
